FAERS Safety Report 5270733-6 (Version None)
Quarter: 2007Q1

REPORT INFORMATION
  Report Type: 
  Country: None (occurrence: None)
  Receive Date: 20061213
  Receipt Date: 20030911
  Transmission Date: 20070707
  Serious: Yes (Other)
  Sender: FDA-Public Use
  Company Number: 2003UW11594

PATIENT
  Sex: Male

DRUGS (1)
  1. IRESSA [Suspect]
     Indication: NON-SMALL CELL LUNG CANCER
     Dates: start: 20030804

REACTIONS (5)
  - ANOREXIA [None]
  - CONFUSIONAL STATE [None]
  - ERYTHEMA [None]
  - RASH [None]
  - WEIGHT DECREASED [None]
